FAERS Safety Report 15952291 (Version 17)
Quarter: 2020Q2

REPORT INFORMATION
  Report Type: Spontaneous
  Country: US (occurrence: US)
  Receive Date: 20190211
  Receipt Date: 20200520
  Transmission Date: 20200713
  Serious: Yes (Hospitalization, Other)
  Sender: FDA-Public Use
  Company Number: US-PFIZER INC-2019005408

PATIENT
  Age: 79 Year
  Sex: Female
  Weight: 61 kg

DRUGS (15)
  1. DETROL LA [Suspect]
     Active Substance: TOLTERODINE TARTRATE
     Indication: IRRITABLE BOWEL SYNDROME
     Dosage: 4 MG, DAILY
     Route: 048
  2. DAYPRO [Concomitant]
     Active Substance: OXAPROZIN
     Dosage: 50 MG, UNK
  3. SYNTHROID [Concomitant]
     Active Substance: LEVOTHYROXINE SODIUM
     Indication: HYPOTHYROIDISM
     Dosage: 112 UG, 1X/DAY
  4. BUMETANIDE. [Concomitant]
     Active Substance: BUMETANIDE
     Dosage: UNK
     Dates: start: 201907, end: 201910
  5. PERMETHRIN. [Concomitant]
     Active Substance: PERMETHRIN
     Dosage: UNK (STARTED PRIOR 13-14 YEARS AGO)
  6. ULTRAM [Concomitant]
     Active Substance: TRAMADOL HYDROCHLORIDE
     Indication: ARTHRITIS
     Dosage: 50 MG, 2X/DAY (AM AND PM)(PROBABLY 13-14 YEARS AGO)
     Route: 048
  7. DIAZEPAM. [Concomitant]
     Active Substance: DIAZEPAM
     Dosage: 2 MG, 2X/DAY (AM AND PM)
  8. DETROL LA [Suspect]
     Active Substance: TOLTERODINE TARTRATE
     Indication: BLADDER DISORDER
     Dosage: 2 MG, ONCE A DAY
     Route: 048
     Dates: start: 2014
  9. BUMETANIDE. [Concomitant]
     Active Substance: BUMETANIDE
     Dosage: 2 MG, 2X/DAY
     Dates: start: 201905, end: 20190920
  10. ULTRAM [Concomitant]
     Active Substance: TRAMADOL HYDROCHLORIDE
     Dosage: 50 MG, 1X/DAY
  11. FUROSEMIDE. [Concomitant]
     Active Substance: FUROSEMIDE
     Indication: DIURETIC THERAPY
     Dosage: 40 MG, 2X/DAY (AM AND PM)
  12. DAYPRO [Concomitant]
     Active Substance: OXAPROZIN
     Indication: ARTHRITIS
     Dosage: 600 MG, 2X/DAY
     Route: 048
     Dates: start: 1998
  13. PERMETHRIN. [Concomitant]
     Active Substance: PERMETHRIN
     Dosage: 5 MG, UNK
     Dates: end: 201907
  14. DETROL LA [Suspect]
     Active Substance: TOLTERODINE TARTRATE
     Indication: INCONTINENCE
     Dosage: 4 MG, ONCE A DAY (AT NIGHT)
     Route: 048
  15. DAYPRO [Concomitant]
     Active Substance: OXAPROZIN
     Dosage: 200 MG, 2X/DAY (AM AND PM)

REACTIONS (19)
  - Musculoskeletal disorder [Recovered/Resolved]
  - Asthenia [Not Recovered/Not Resolved]
  - Spinal osteoarthritis [Not Recovered/Not Resolved]
  - Body height decreased [Recovered/Resolved]
  - Cellulitis [Recovered/Resolved]
  - Arthritis [Not Recovered/Not Resolved]
  - Discomfort [Not Recovered/Not Resolved]
  - Spondylitis [Not Recovered/Not Resolved]
  - Product dose omission [Unknown]
  - Carpal tunnel syndrome [Not Recovered/Not Resolved]
  - Feeling abnormal [Not Recovered/Not Resolved]
  - Suicidal ideation [Unknown]
  - Insomnia [Unknown]
  - Discharge [Not Recovered/Not Resolved]
  - Drug ineffective [Unknown]
  - Hypoaesthesia [Not Recovered/Not Resolved]
  - Visual impairment [Unknown]
  - Renal failure [Recovered/Resolved]
  - Emotional disorder [Unknown]

NARRATIVE: CASE EVENT DATE: 201604
